FAERS Safety Report 5418273-5 (Version None)
Quarter: 2007Q3

REPORT INFORMATION
  Report Type: 
  Country: None (occurrence: None)
  Receive Date: 20070817
  Receipt Date: 20070813
  Transmission Date: 20080115
  Serious: Yes (Life-Threatening, Hospitalization)
  Sender: FDA-Public Use
  Company Number: B0483053A

PATIENT
  Age: 78 Year
  Sex: Female
  Weight: 28 kg

DRUGS (4)
  1. ARIXTRA [Suspect]
     Indication: THROMBOSIS PROPHYLAXIS
     Dosage: 2.5MG PER DAY
     Route: 058
     Dates: start: 20070713, end: 20070721
  2. PEON [Suspect]
     Indication: DRUG USE FOR UNKNOWN INDICATION
     Route: 048
  3. DASEN [Concomitant]
     Route: 048
  4. SELBEX [Concomitant]
     Route: 048

REACTIONS (5)
  - BLOOD PRESSURE SYSTOLIC DECREASED [None]
  - DEPRESSED LEVEL OF CONSCIOUSNESS [None]
  - GASTRIC ULCER HAEMORRHAGE [None]
  - HEART RATE DECREASED [None]
  - PALLOR [None]
